FAERS Safety Report 13908790 (Version 1)
Quarter: 2017Q3

REPORT INFORMATION
  Report Type: Spontaneous
  Country: BR (occurrence: BR)
  Receive Date: 20170827
  Receipt Date: 20170827
  Transmission Date: 20171127
  Serious: No
  Sender: FDA-Public Use
  Company Number: BR-009507513-1708BRA009181

PATIENT
  Age: 35 Year
  Sex: Female
  Weight: 100 kg

DRUGS (3)
  1. NASONEX [Suspect]
     Active Substance: MOMETASONE FUROATE
     Indication: RHINITIS ALLERGIC
     Dosage: 1 JET IN EACH NOSTRIL- ONCE A DAILY
     Dates: start: 20170817
  2. LOTAR [Concomitant]
     Active Substance: AMLODIPINE\LOSARTAN
     Indication: HYPERTENSION
     Dosage: STRENGTH: 2.5/50MG, 1 TABLET DAILY
     Route: 048
  3. MARESIS [Concomitant]
     Dosage: 3 JETS IN EACH NOSTRIL, THREE TIMES DAILY
     Dates: start: 20170817

REACTIONS (1)
  - Incorrect route of drug administration [Unknown]

NARRATIVE: CASE EVENT DATE: 20170817
